FAERS Safety Report 12826633 (Version 1)
Quarter: 2016Q4

REPORT INFORMATION
  Report Type: Spontaneous
  Country: US (occurrence: US)
  Receive Date: 20161007
  Receipt Date: 20161007
  Transmission Date: 20170207
  Serious: No
  Sender: FDA-Public Use
  Company Number: US-WATSON-2016-14722

PATIENT
  Age: 51 Year
  Sex: Male

DRUGS (2)
  1. FENTANYL-50 (WATSON LABORATORIES) [Suspect]
     Active Substance: FENTANYL
     Dosage: 50 MCG, 1 EVERY 48 HOURS
     Route: 062
     Dates: start: 2015, end: 2016
  2. FENTANYL-50 (WATSON LABORATORIES) [Suspect]
     Active Substance: FENTANYL
     Indication: PAIN
     Dosage: 50 MCG, 1 EVERY 48 HOURS
     Route: 062
     Dates: start: 20160704

REACTIONS (1)
  - Drug ineffective [Not Recovered/Not Resolved]

NARRATIVE: CASE EVENT DATE: 201606
